FAERS Safety Report 8432974-6 (Version None)
Quarter: 2012Q2

REPORT INFORMATION
  Report Type: 
  Country: None (occurrence: None)
  Receive Date: 20120613
  Receipt Date: 20120604
  Transmission Date: 20120825
  Serious: Yes (Other)
  Sender: FDA-Public Use
  Company Number: ES-ROCHE-1075257

PATIENT
  Sex: Female

DRUGS (1)
  1. XENICAL [Suspect]
     Indication: OVERWEIGHT
     Route: 048

REACTIONS (4)
  - DRUG INEFFECTIVE [None]
  - VITAMIN E DECREASED [None]
  - ANXIETY [None]
  - VITAMIN A DECREASED [None]
